FAERS Safety Report 7385360-4 (Version None)
Quarter: 2011Q1

REPORT INFORMATION
  Report Type: 
  Country: None (occurrence: None)
  Receive Date: 20110330
  Receipt Date: 20101027
  Transmission Date: 20110831
  Serious: No
  Sender: FDA-Public Use
  Company Number: US-MYLANLABS-2010S1019654

PATIENT
  Age: 30 Year
  Sex: Male
  Weight: 170 kg

DRUGS (2)
  1. EMSAM [Suspect]
     Indication: DEPRESSION
     Route: 062
     Dates: start: 20101026, end: 20101027
  2. NUVIGIL [Concomitant]
     Indication: SLEEP DISORDER
     Dates: start: 20100701

REACTIONS (1)
  - EUPHORIC MOOD [None]
